FAERS Safety Report 10396965 (Version 1)
Quarter: 2014Q3

REPORT INFORMATION
  Report Type: Spontaneous
  Country: GR (occurrence: GR)
  Receive Date: 20140820
  Receipt Date: 20140820
  Transmission Date: 20150326
  Serious: Yes (Other)
  Sender: FDA-Public Use
  Company Number: GR-BAYER-2014-122208

PATIENT
  Age: 82 Year
  Sex: Male

DRUGS (7)
  1. LEVITRA [Suspect]
     Active Substance: VARDENAFIL HYDROCHLORIDE TRIHYDRATE
     Dosage: 20 MG, UNK
     Route: 048
     Dates: start: 20140813
  2. STILNOX [Concomitant]
     Active Substance: ZOLPIDEM TARTRATE
     Dosage: UNK
  3. LEXOTANIL [Concomitant]
     Active Substance: BROMAZEPAM
     Dosage: UNK
  4. VASTAREL [Concomitant]
     Active Substance: TRIMETAZIDINE DIHYDROCHLORIDE
     Dosage: UNK
  5. TRIVASTAL [Concomitant]
     Active Substance: PIRIBEDIL
     Dosage: UNK
  6. COVERSYL [Concomitant]
     Active Substance: PERINDOPRIL
  7. SYMMETREL [Concomitant]
     Active Substance: AMANTADINE HYDROCHLORIDE
     Dosage: UNK

REACTIONS (1)
  - Haematuria [None]

NARRATIVE: CASE EVENT DATE: 20140814
